FAERS Safety Report 8511848-6 (Version None)
Quarter: 2012Q3

REPORT INFORMATION
  Report Type: 
  Country: None (occurrence: None)
  Receive Date: 20120716
  Receipt Date: 20120711
  Transmission Date: 20120928
  Serious: Yes (Disabling, Other)
  Sender: FDA-Public Use
  Company Number: PHHY2012VE060296

PATIENT
  Sex: Male

DRUGS (1)
  1. CLOZAPINE [Suspect]
     Indication: MUSCLE SPASTICITY
     Dosage: 25 MG, QD
     Route: 048
     Dates: start: 20070801

REACTIONS (4)
  - MUSCULAR WEAKNESS [None]
  - DYSPHAGIA [None]
  - MASTICATION DISORDER [None]
  - CHEST EXPANSION DECREASED [None]
